FAERS Safety Report 4762027-X (Version None)
Quarter: 2005Q3

REPORT INFORMATION
  Report Type: 
  Country: None (occurrence: None)
  Receive Date: 20050831
  Receipt Date: 20050523
  Transmission Date: 20060218
  Serious: No
  Sender: FDA-Public Use
  Company Number: PHEH2005US05830

PATIENT
  Age: 81 Year
  Sex: Female

DRUGS (8)
  1. ENABLEX [Suspect]
     Indication: HYPERTONIC BLADDER
     Dosage: 7.5 MG QD
     Dates: start: 20050501
  2. PLAVIX [Concomitant]
  3. DIOVAN (VALSARTIN) [Concomitant]
  4. SYNTHROID [Concomitant]
  5. LIPITOR [Concomitant]
  6. NORVASC [Concomitant]
  7. CELEBREX [Concomitant]
  8. ACTOS [Concomitant]

REACTIONS (8)
  - CONDITION AGGRAVATED [None]
  - DRUG INEFFECTIVE [None]
  - DRY EYE [None]
  - DRY MOUTH [None]
  - EYE PRURITUS [None]
  - INCONTINENCE [None]
  - LACRIMATION INCREASED [None]
  - VISION BLURRED [None]
